FAERS Safety Report 19472333 (Version 1)
Quarter: 2021Q2

REPORT INFORMATION
  Report Type: Spontaneous
  Country: US (occurrence: US)
  Receive Date: 20210629
  Receipt Date: 20210629
  Transmission Date: 20210717
  Serious: No
  Sender: FDA-Public Use
  Company Number: US-CIPLA LTD.-2021US02795

PATIENT

DRUGS (4)
  1. BUSPIRONE HCL [Concomitant]
     Active Substance: BUSPIRONE HYDROCHLORIDE
     Indication: ANXIETY
     Dosage: UNK, PRN (2?3 TIMES A WEEK), FROM 3 YEARS
     Route: 065
     Dates: start: 2019
  2. EUTHYROX [Concomitant]
     Active Substance: LEVOTHYROXINE SODIUM
     Indication: THYROID FUNCTION TEST ABNORMAL
     Dosage: UNK, QD FROM 5 YEARS
     Route: 065
  3. TESTOSTERONE. [Suspect]
     Active Substance: TESTOSTERONE
     Indication: HORMONE REPLACEMENT THERAPY
     Dosage: 50 MILLIGRAM, ONCE A WEEK ON TUESDAYS
     Route: 065
     Dates: start: 20201209
  4. TESTOSTERONE. [Suspect]
     Active Substance: TESTOSTERONE
     Indication: BODY DYSMORPHIC DISORDER
     Dosage: 80 MILLIGRAM, ONCE A WEEK ON TUESDAYS
     Route: 065
     Dates: start: 202103, end: 202103

REACTIONS (5)
  - Product prescribing error [Unknown]
  - Multiple use of single-use product [Unknown]
  - Product use in unapproved indication [Unknown]
  - Off label use [Unknown]
  - Product deposit [Unknown]

NARRATIVE: CASE EVENT DATE: 202012
